FAERS Safety Report 8574854-1 (Version None)
Quarter: 2012Q2

REPORT INFORMATION
  Report Type: 
  Country: None (occurrence: None)
  Receive Date: 20120423
  Receipt Date: 20100419
  Transmission Date: 20120825
  Serious: Yes (Other)
  Sender: FDA-Public Use
  Company Number: PHEH2009US15540

PATIENT
  Age: 50 Year
  Sex: Female

DRUGS (1)
  1. EXJADE [Suspect]
     Indication: IRON OVERLOAD
     Dosage: 125 DAILY, ORAL
     Route: 048
     Dates: start: 20080828, end: 20090407

REACTIONS (3)
  - HEPATIC ENZYME INCREASED [None]
  - ABDOMINAL PAIN [None]
  - LIVER DISORDER [None]
